FAERS Safety Report 16878507 (Version 3)
Quarter: 2020Q4

REPORT INFORMATION
  Report Type: Spontaneous
  Country: US (occurrence: US)
  Receive Date: 20191002
  Receipt Date: 20201217
  Transmission Date: 20210113
  Serious: Yes (Hospitalization, Other)
  Sender: FDA-Public Use
  Company Number: US-NAPPMUNDI-USA-2019-0148534

PATIENT
  Sex: Male

DRUGS (2)
  1. OXYCONTIN [Suspect]
     Active Substance: OXYCODONE HYDROCHLORIDE
     Indication: ARTHRALGIA
     Dosage: 10 MG, 4 - 5 X DAY
     Route: 048
  2. OXYCONTIN [Suspect]
     Active Substance: OXYCODONE HYDROCHLORIDE
     Dosage: 80 MG, 5 - 6 X DAY
     Route: 048
     Dates: start: 2002

REACTIONS (9)
  - Detoxification [Recovered/Resolved]
  - Delusion [Recovered/Resolved]
  - Suicidal ideation [Unknown]
  - Knee operation [Unknown]
  - Drug dependence [Unknown]
  - Off label use [Unknown]
  - Drug ineffective [Unknown]
  - Memory impairment [Recovered/Resolved]
  - Unevaluable event [Unknown]
